FAERS Safety Report 18023615 (Version 2)
Quarter: 2020Q3

REPORT INFORMATION
  Report Type: Report from Study
  Country: US (occurrence: US)
  Receive Date: 20200714
  Receipt Date: 20200814
  Transmission Date: 20201103
  Serious: Yes (Hospitalization)
  Sender: FDA-Public Use
  Company Number: US-ACTELION-A-NJ2019-196658

PATIENT
  Age: 67 Year
  Sex: Female
  Weight: 54.42 kg

DRUGS (5)
  1. REMODULIN [Concomitant]
     Active Substance: TREPROSTINIL
  2. DILTIAZEM. [Concomitant]
     Active Substance: DILTIAZEM
  3. OPSUMIT [Suspect]
     Active Substance: MACITENTAN
     Indication: PULMONARY ARTERIAL HYPERTENSION
     Dosage: 10 MG, QD
     Route: 048
     Dates: start: 20170523
  4. WARFARIN [Concomitant]
     Active Substance: WARFARIN
  5. TADALAFIL. [Concomitant]
     Active Substance: TADALAFIL

REACTIONS (8)
  - Vomiting [Unknown]
  - Hyponatraemia [Unknown]
  - Infusion site irritation [Unknown]
  - Bronchitis [Recovering/Resolving]
  - Dermatitis contact [Unknown]
  - Peripheral swelling [Unknown]
  - Infusion site pruritus [Unknown]
  - Malaise [Unknown]

NARRATIVE: CASE EVENT DATE: 201912
